FAERS Safety Report 6761306-4 (Version None)
Quarter: 2010Q2

REPORT INFORMATION
  Report Type: 
  Country: None (occurrence: None)
  Receive Date: 20100608
  Receipt Date: 20100527
  Transmission Date: 20101027
  Serious: Yes (Hospitalization)
  Sender: FDA-Public Use
  Company Number: PHHY2010DO34544

PATIENT
  Age: 68 Year
  Sex: Male

DRUGS (3)
  1. EXFORGE [Suspect]
     Dosage: 160/10 MG
     Route: 048
  2. BETANOLOL [Concomitant]
     Dosage: 50 MG, UNK
  3. CARBIMEN [Concomitant]
     Dosage: UNK

REACTIONS (3)
  - ANXIETY [None]
  - DYSPNOEA [None]
  - PANIC ATTACK [None]
